FAERS Safety Report 5709894-0 (Version None)
Quarter: 2008Q2

REPORT INFORMATION
  Report Type: 
  Country: None (occurrence: None)
  Receive Date: 20080418
  Receipt Date: 20070521
  Transmission Date: 20081010
  Serious: No
  Sender: FDA-Public Use
  Company Number: US-ASTRAZENECA-2007UW12558

PATIENT
  Age: 69 Year
  Sex: Female
  Weight: 79.4 kg

DRUGS (2)
  1. TOPROL-XL [Suspect]
     Indication: HYPERTENSION
     Dosage: 25MG IN AM AND 12.5 MG IN PM
     Route: 048
     Dates: start: 20070501
  2. NEXIUM [Concomitant]

REACTIONS (8)
  - AMNESIA [None]
  - COORDINATION ABNORMAL [None]
  - COUGH [None]
  - DIZZINESS [None]
  - DRY MOUTH [None]
  - FATIGUE [None]
  - HYPERSENSITIVITY [None]
  - OEDEMA PERIPHERAL [None]
